FAERS Safety Report 19815360 (Version 1)
Quarter: 2021Q3

REPORT INFORMATION
  Report Type: Spontaneous
  Country: NL (occurrence: NL)
  Receive Date: 20210910
  Receipt Date: 20210910
  Transmission Date: 20211014
  Serious: Yes (Hospitalization)
  Sender: FDA-Public Use
  Company Number: NL-MYLANLABS-2021M1060245

PATIENT
  Sex: Female
  Weight: 62 kg

DRUGS (1)
  1. SIMVASTATIN MYLAN [Suspect]
     Active Substance: SIMVASTATIN
     Indication: HYPERCHOLESTEROLAEMIA
     Dosage: 20 MILLIGRAM, QD (1 TABLET PER DAY IN THE EVENING. (ACCIDENTALLY TOOK 2 THAT NIGHT)
     Dates: start: 2013

REACTIONS (2)
  - Pancreatitis acute [Recovered/Resolved]
  - Accidental overdose [Recovered/Resolved]
